FAERS Safety Report 16077892 (Version 1)
Quarter: 2019Q1

REPORT INFORMATION
  Report Type: Spontaneous
  Country: US (occurrence: US)
  Receive Date: 20190315
  Receipt Date: 20190315
  Transmission Date: 20190418
  Serious: No
  Sender: FDA-Public Use
  Company Number: US-PFIZER INC-2019110606

PATIENT

DRUGS (1)
  1. RETACRIT [Suspect]
     Active Substance: EPOETIN ALFA-EPBX
     Dosage: 60000 IU, UNK (ONE 40000 AND 2 10000^S)

REACTIONS (3)
  - Injection site discomfort [Unknown]
  - Product administration error [Unknown]
  - Circumstance or information capable of leading to medication error [Unknown]
